FAERS Safety Report 5612846-2 (Version None)
Quarter: 2008Q1

REPORT INFORMATION
  Report Type: 
  Country: None (occurrence: None)
  Receive Date: 20080128
  Receipt Date: 20060509
  Transmission Date: 20080703
  Serious: No
  Sender: FDA-Public Use
  Company Number: PV06.0866

PATIENT
  Age: 35 Year
  Sex: Female

DRUGS (2)
  1. PAROXETINE [Suspect]
     Indication: DEPRESSION
     Dosage: 20 MG,
     Dates: start: 19950101, end: 19990101
  2. VENLAFAXINE HCL [Concomitant]

REACTIONS (1)
  - BREAST CANCER [None]
